FAERS Safety Report 16950426 (Version 6)
Quarter: 2022Q1

REPORT INFORMATION
  Report Type: Report from Study
  Country: JP (occurrence: None)
  Receive Date: 20191023
  Receipt Date: 20220201
  Transmission Date: 20220424
  Serious: Yes (Hospitalization)
  Sender: FDA-Public Use
  Company Number: JP-EISAI MEDICAL RESEARCH-EC-2019-063888

PATIENT
  Age: 68 Year
  Sex: Male
  Weight: 55 kg

DRUGS (15)
  1. LENVATINIB [Suspect]
     Active Substance: LENVATINIB
     Indication: Hepatocellular carcinoma
     Route: 048
     Dates: start: 20190717, end: 20190730
  2. LENVATINIB [Suspect]
     Active Substance: LENVATINIB
     Route: 048
     Dates: start: 20190813, end: 20190909
  3. LENVATINIB [Suspect]
     Active Substance: LENVATINIB
     Route: 048
     Dates: start: 20190910, end: 20190923
  4. XARELTO [Concomitant]
     Active Substance: RIVAROXABAN
     Indication: Portal vein thrombosis
     Route: 048
     Dates: start: 20190806, end: 20190807
  5. XARELTO [Concomitant]
     Active Substance: RIVAROXABAN
     Route: 048
     Dates: start: 20190808
  6. VONOPRAZAN FUMARATE [Concomitant]
     Active Substance: VONOPRAZAN FUMARATE
     Indication: Gastrooesophageal reflux disease
     Dates: start: 20190808
  7. SODIUM PICOSULFATE [Concomitant]
     Active Substance: SODIUM PICOSULFATE
     Indication: Constipation
     Dosage: LIQUID FORMULATION FOR INTERNAL USE
     Dates: start: 20190813
  8. MAGNESIUM OXIDE [Concomitant]
     Active Substance: MAGNESIUM OXIDE
     Indication: Constipation
     Route: 048
     Dates: start: 20190826
  9. DECADRON [Concomitant]
     Active Substance: DEXAMETHASONE
     Indication: Malaise
     Route: 048
     Dates: start: 20190826
  10. DECADRON [Concomitant]
     Active Substance: DEXAMETHASONE
     Indication: Decreased appetite
  11. URSODIOL [Concomitant]
     Active Substance: URSODIOL
     Indication: Hepatitis
  12. ENTECAVIR HYDRATE [Concomitant]
     Indication: Hepatitis B
     Route: 048
  13. SUCRALFATE [Concomitant]
     Active Substance: SUCRALFATE
     Indication: Gastrooesophageal reflux disease
     Dosage: GRANULATED POWDER
     Route: 048
  14. HERBALS [Concomitant]
     Active Substance: HERBALS
     Indication: Constipation
     Dosage: GRANULATED POWDER
     Route: 048
     Dates: start: 20190930
  15. FUROSEMIDE [Concomitant]
     Active Substance: FUROSEMIDE
     Indication: Ascites
     Route: 048
     Dates: start: 20191007

REACTIONS (3)
  - Ascites [Unknown]
  - Decreased appetite [Recovered/Resolved]
  - Oedema peripheral [Recovered/Resolved]

NARRATIVE: CASE EVENT DATE: 20190826
